FAERS Safety Report 19497499 (Version 1)
Quarter: 2021Q3

REPORT INFORMATION
  Report Type: Spontaneous
  Country: DE (occurrence: DE)
  Receive Date: 20210706
  Receipt Date: 20210706
  Transmission Date: 20211014
  Serious: Yes (Hospitalization)
  Sender: FDA-Public Use
  Company Number: DE-TEVA-2021-DE-1929524

PATIENT
  Age: 64 Year
  Sex: Male
  Weight: 82 kg

DRUGS (8)
  1. CISPLATIN. [Suspect]
     Active Substance: CISPLATIN
     Dosage: ACCORDING TO THE SCHEME
     Route: 065
  2. SIMVASTATIN. [Concomitant]
     Active Substance: SIMVASTATIN
     Dosage: 40 MILLIGRAM DAILY;  0?0?1?0
  3. ETOPOSID [Suspect]
     Active Substance: ETOPOSIDE
     Dosage: ACCORDING TO THE SCHEME
     Route: 065
  4. HYDROCORTISON [HYDROCORTISONE] [Concomitant]
     Active Substance: HYDROCORTISONE
     Dosage: 40 MILLIGRAM DAILY; 20 MG, 1?1?0?0
  5. MITOTAN [Concomitant]
     Active Substance: MITOTANE
     Dosage: 4 DOSAGE FORMS DAILY; 500 MG, 4?0?0?0
  6. MITOTAN [Suspect]
     Active Substance: MITOTANE
     Dosage: ACCORDING TO THE SCHEME
  7. CANDESARTAN. [Concomitant]
     Active Substance: CANDESARTAN
     Dosage: .5 DOSAGE FORMS DAILY; 32 MG, 0.5?0?0?0
  8. DOXORUBICIN [Suspect]
     Active Substance: DOXORUBICIN
     Dosage: ACCORDING TO THE SCHEME
     Route: 065

REACTIONS (3)
  - Restlessness [Recovering/Resolving]
  - General physical health deterioration [Recovering/Resolving]
  - Dyspnoea [Recovering/Resolving]
